FAERS Safety Report 10558329 (Version 1)
Quarter: 2014Q4

REPORT INFORMATION
  Report Type: Spontaneous
  Country: UG (occurrence: None)
  Receive Date: 20141029
  Receipt Date: 20141029
  Transmission Date: 20150529
  Serious: Yes (Life-Threatening, Hospitalization, Other)
  Sender: FDA-Public Use
  Company Number: UG2014GSK007053

PATIENT
  Age: 31 Year
  Sex: Male

DRUGS (8)
  1. COTRIMOXAZOLE [Suspect]
     Active Substance: SULFAMETHOXAZOLE\TRIMETHOPRIM
     Dates: start: 20140825
  2. NEVIRAPINE (NEVIRAPINE) [Suspect]
     Active Substance: NEVIRAPINE
     Dates: start: 20140903
  3. RALTEGRAVIR [Suspect]
     Active Substance: RALTEGRAVIR
     Indication: HIV INFECTION
     Dates: start: 20140903
  4. LAMIVUDINE (LAMIVUDINE) [Suspect]
     Active Substance: LAMIVUDINE
     Indication: HIV INFECTION
     Dates: start: 20140903
  5. FLUCONAZOLE (FLUCONAZOLE) UNKNOWN [Suspect]
     Active Substance: FLUCONAZOLE
     Dates: start: 20140903
  6. ZIDOVUDINE. [Suspect]
     Active Substance: ZIDOVUDINE
     Indication: HIV INFECTION
     Dates: start: 20140903, end: 20141010
  7. ISONIAZID. [Suspect]
     Active Substance: ISONIAZID
     Dates: start: 20140903
  8. PYRIDOXINE [Concomitant]
     Active Substance: PYRIDOXINE

REACTIONS (5)
  - Oesophageal candidiasis [None]
  - Dizziness [None]
  - Drug-induced liver injury [None]
  - Palpitations [None]
  - Anaemia [None]

NARRATIVE: CASE EVENT DATE: 20141004
